FAERS Safety Report 22596688 (Version 1)
Quarter: 2023Q2

REPORT INFORMATION
  Report Type: Spontaneous
  Country: IT (occurrence: IT)
  Receive Date: 20230613
  Receipt Date: 20230613
  Transmission Date: 20230722
  Serious: Yes (Other)
  Sender: FDA-Public Use
  Company Number: IT-BEXIMCO-2023BEX00027

PATIENT
  Age: 42 Year
  Sex: Male

DRUGS (1)
  1. FLECAINIDE ACETATE [Suspect]
     Active Substance: FLECAINIDE ACETATE
     Indication: Drug provocation test
     Dosage: 2 MG/KG OVER 10 MINUTES (INFUSION)

REACTIONS (1)
  - Brugada syndrome [Recovered/Resolved]
